FAERS Safety Report 19394882 (Version 1)
Quarter: 2021Q2

REPORT INFORMATION
  Report Type: Spontaneous
  Country: US (occurrence: US)
  Receive Date: 20210609
  Receipt Date: 20210609
  Transmission Date: 20210717
  Serious: Yes (Hospitalization, Other)
  Sender: FDA-Public Use
  Company Number: US-ASTRAZENECA-2021A489403

PATIENT
  Sex: Male

DRUGS (4)
  1. BRILINTA [Suspect]
     Active Substance: TICAGRELOR
     Indication: STENT PLACEMENT
     Route: 048
     Dates: start: 202102
  2. BRILINTA [Suspect]
     Active Substance: TICAGRELOR
     Indication: THROMBOSIS
     Route: 048
     Dates: start: 202102
  3. BRILINTA [Suspect]
     Active Substance: TICAGRELOR
     Indication: CEREBROVASCULAR ACCIDENT
     Route: 048
     Dates: start: 202102
  4. BRILINTA [Suspect]
     Active Substance: TICAGRELOR
     Indication: THROMBECTOMY
     Route: 048
     Dates: start: 202102

REACTIONS (8)
  - Vascular stent occlusion [Unknown]
  - Vomiting [Unknown]
  - Circumstance or information capable of leading to medication error [Not Recovered/Not Resolved]
  - Swelling [Not Recovered/Not Resolved]
  - Ejection fraction decreased [Not Recovered/Not Resolved]
  - Ileus [Unknown]
  - Gastric dilatation [Not Recovered/Not Resolved]
  - Lower gastrointestinal haemorrhage [Not Recovered/Not Resolved]
